FAERS Safety Report 25871752 (Version 1)
Quarter: 2025Q4

REPORT INFORMATION
  Report Type: Spontaneous
  Country: BR (occurrence: BR)
  Receive Date: 20251001
  Receipt Date: 20251001
  Transmission Date: 20260117
  Serious: Yes (Hospitalization, Other)
  Sender: GE HEALTHCARE
  Company Number: BR-GE HEALTHCARE-2025CSU013622

PATIENT
  Age: 28 Year
  Sex: Female
  Weight: 89 kg

DRUGS (1)
  1. OMNIPAQUE [Suspect]
     Active Substance: IOHEXOL
     Indication: Computerised tomogram abdomen
     Dosage: 110 ML, TOTAL
     Route: 042
     Dates: start: 20250908

REACTIONS (3)
  - Hypoglycaemia [Not Recovered/Not Resolved]
  - Vomiting [Not Recovered/Not Resolved]
  - Seizure [Not Recovered/Not Resolved]

NARRATIVE: CASE EVENT DATE: 20250908
